FAERS Safety Report 20164614 (Version 2)
Quarter: 2022Q1

REPORT INFORMATION
  Report Type: Spontaneous
  Country: JP (occurrence: JP)
  Receive Date: 20211209
  Receipt Date: 20220307
  Transmission Date: 20220423
  Serious: Yes (Life-Threatening, Hospitalization, Other)
  Sender: FDA-Public Use
  Company Number: JP-ONO-2021JP030141

PATIENT
  Age: 73 Year
  Sex: Female
  Weight: 58.9 kg

DRUGS (2)
  1. OPDIVO [Suspect]
     Active Substance: NIVOLUMAB
     Indication: Non-small cell lung cancer recurrent
     Dosage: 480 MILLIGRAM
     Route: 041
     Dates: start: 20211104, end: 20211104
  2. LANSOPRAZOLE [Concomitant]
     Active Substance: LANSOPRAZOLE
     Indication: Prophylaxis
     Dosage: 15 MILLIGRAM, QD,EVERYDAY

REACTIONS (4)
  - Infusion related reaction [Recovered/Resolved]
  - Myositis [Unknown]
  - Polymyositis [Recovering/Resolving]
  - Venous thrombosis limb [Unknown]

NARRATIVE: CASE EVENT DATE: 20211104
